FAERS Safety Report 8155512-4 (Version None)
Quarter: 2012Q1

REPORT INFORMATION
  Report Type: 
  Country: None (occurrence: None)
  Receive Date: 20120215
  Receipt Date: 20120131
  Transmission Date: 20120608
  Serious: Yes (Life-Threatening, Hospitalization)
  Sender: FDA-Public Use
  Company Number: NO-1190271

PATIENT
  Sex: Male

DRUGS (1)
  1. FLUORESCEIN SODIUM [Suspect]
     Indication: ANGIOGRAM
     Dosage: (INTRAVENOUS (NOT OTHERWISE SPECIFIED))
     Route: 042
     Dates: start: 20100504, end: 20100504

REACTIONS (4)
  - ANAPHYLACTIC REACTION [None]
  - CARDIAC ARREST [None]
  - RESPIRATORY FAILURE [None]
  - PNEUMONIA [None]
